FAERS Safety Report 5366516-9 (Version None)
Quarter: 2007Q2

REPORT INFORMATION
  Report Type: 
  Country: None (occurrence: None)
  Receive Date: 20070622
  Receipt Date: 20070612
  Transmission Date: 20071010
  Serious: Yes (Disabling, Other)
  Sender: FDA-Public Use
  Company Number: US-PFIZER INC-2007049024

PATIENT
  Weight: 88.5 kg

DRUGS (7)
  1. CHANTIX [Suspect]
     Indication: SMOKING CESSATION THERAPY
     Route: 048
     Dates: start: 20070510, end: 20070601
  2. ZETIA [Concomitant]
     Indication: BLOOD CHOLESTEROL
     Route: 048
  3. LIPITOR [Concomitant]
     Indication: BLOOD CHOLESTEROL
     Route: 048
  4. ALPRAZOLAM [Concomitant]
     Indication: ANXIETY
     Route: 048
  5. TOPAMAX [Concomitant]
     Indication: HEADACHE
     Route: 048
  6. EFFEXOR [Concomitant]
     Indication: DEPRESSION
     Route: 048
  7. NEXIUM [Concomitant]
     Indication: GASTROOESOPHAGEAL REFLUX DISEASE
     Route: 048

REACTIONS (29)
  - ABNORMAL DREAMS [None]
  - ACTIVITIES OF DAILY LIVING IMPAIRED [None]
  - ARTHRALGIA [None]
  - ASTHENIA [None]
  - BRAIN NEOPLASM [None]
  - CONSTIPATION [None]
  - DEPRESSION [None]
  - DISTURBANCE IN ATTENTION [None]
  - DRY MOUTH [None]
  - DYSGEUSIA [None]
  - FATIGUE [None]
  - FLATULENCE [None]
  - GAIT DISTURBANCE [None]
  - GINGIVAL BLEEDING [None]
  - HEADACHE [None]
  - HEART RATE IRREGULAR [None]
  - MEMORY IMPAIRMENT [None]
  - MENTAL STATUS CHANGES [None]
  - MOOD ALTERED [None]
  - MULTIPLE SCLEROSIS [None]
  - MYALGIA [None]
  - NAUSEA [None]
  - PAIN IN EXTREMITY [None]
  - SLEEP DISORDER [None]
  - SOMNOLENCE [None]
  - SUICIDAL IDEATION [None]
  - URINARY TRACT INFECTION [None]
  - VISUAL DISTURBANCE [None]
  - WEIGHT DECREASED [None]
